FAERS Safety Report 18574469 (Version 1)
Quarter: 2020Q4

REPORT INFORMATION
  Report Type: Spontaneous
  Country: US (occurrence: US)
  Receive Date: 20201203
  Receipt Date: 20201203
  Transmission Date: 20210114
  Serious: Yes (Other)
  Sender: FDA-Public Use
  Company Number: NVSC2020US320887

PATIENT
  Age: 79 Year
  Sex: Female
  Weight: 55.33 kg

DRUGS (1)
  1. RECLAST [Suspect]
     Active Substance: ZOLEDRONIC ACID
     Indication: OSTEOPOROSIS
     Dosage: 5 MG (ONE SINGLE DOSE)
     Route: 042
     Dates: start: 20201009, end: 20201009

REACTIONS (7)
  - Eyelid ptosis [Recovering/Resolving]
  - Eye pain [Recovering/Resolving]
  - Swelling of eyelid [Recovering/Resolving]
  - Eyelids pruritus [Recovering/Resolving]
  - Drug hypersensitivity [Recovering/Resolving]
  - Erythema of eyelid [Recovering/Resolving]
  - Lacrimation increased [Recovering/Resolving]

NARRATIVE: CASE EVENT DATE: 20201013
